FAERS Safety Report 17014779 (Version 1)
Quarter: 2019Q4

REPORT INFORMATION
  Report Type: Spontaneous
  Country: CH (occurrence: CH)
  Receive Date: 20191111
  Receipt Date: 20191111
  Transmission Date: 20200122
  Serious: Yes (Life-Threatening, Hospitalization)
  Sender: FDA-Public Use
  Company Number: CH-TEVA-2019-CH-1135643

PATIENT
  Age: 15 Year
  Sex: Male

DRUGS (20)
  1. VANCOMYCIN [Suspect]
     Active Substance: VANCOMYCIN
     Route: 042
     Dates: start: 20191002
  2. MEROPENEM. [Suspect]
     Active Substance: MEROPENEM
     Route: 042
     Dates: start: 20191014, end: 20191018
  3. GENTAMICINE [Concomitant]
     Active Substance: GENTAMICIN
     Dates: start: 20190926, end: 20191002
  4. TRAMAL [Concomitant]
     Active Substance: TRAMADOL
     Dosage: AS NECESSARY
  5. IRFEN [Suspect]
     Active Substance: IBUPROFEN
     Route: 048
     Dates: start: 20190619
  6. DAFALGAN [Concomitant]
     Active Substance: ACETAMINOPHEN
     Dosage: AS NECESSARY
  7. CETIRIZINE [Concomitant]
     Active Substance: CETIRIZINE HYDROCHLORIDE
     Dates: start: 20191021, end: 20191021
  8. MEROPENEM. [Suspect]
     Active Substance: MEROPENEM
     Route: 042
     Dates: start: 20191020
  9. TRAMAL [Concomitant]
     Active Substance: TRAMADOL
     Dosage: IN TOTAL
     Dates: start: 20191022, end: 20191022
  10. NEXIUM MUPS [Suspect]
     Active Substance: ESOMEPRAZOLE
     Dosage: 40 MILLIGRAM DAILY;
     Route: 048
     Dates: start: 20191004
  11. GLUCOSE NACL [Concomitant]
  12. ACIDUM FOLICUM [Concomitant]
     Active Substance: FOLIC ACID
     Dates: start: 20191004
  13. IRFEN [Suspect]
     Active Substance: IBUPROFEN
     Dosage: AS NECESSARY
     Route: 065
     Dates: end: 20190925
  14. CLEXANE [Suspect]
     Active Substance: ENOXAPARIN SODIUM
     Dosage: 40 MILLIGRAM DAILY; IN THE MORNING
     Route: 058
     Dates: start: 20191004
  15. FLUCLOXACILLINE [Concomitant]
     Active Substance: FLUCLOXACILLIN
     Dates: start: 20190926, end: 20191002
  16. MALTOFER [Concomitant]
     Dates: start: 20191005
  17. VITAMINE C [Concomitant]
     Active Substance: ASCORBIC ACID
     Dates: start: 20191004
  18. PIPERACILLIN AND TAZOBACTAM [Suspect]
     Active Substance: PIPERACILLIN SODIUM\TAZOBACTAM SODIUM
     Route: 042
     Dates: start: 20191013, end: 20191014
  19. CETIRIZINE [Concomitant]
     Active Substance: CETIRIZINE HYDROCHLORIDE
     Dosage: AS NECESSARY
     Dates: start: 20191015
  20. CETIRIZINE [Concomitant]
     Active Substance: CETIRIZINE HYDROCHLORIDE
     Dates: start: 20191015, end: 20191015

REACTIONS (1)
  - Drug reaction with eosinophilia and systemic symptoms [Not Recovered/Not Resolved]

NARRATIVE: CASE EVENT DATE: 201910
